FAERS Safety Report 7039781-X (Version None)
Quarter: 2010Q4

REPORT INFORMATION
  Report Type: 
  Country: None (occurrence: None)
  Receive Date: 20101012
  Receipt Date: 20101001
  Transmission Date: 20110411
  Serious: Yes (Hospitalization)
  Sender: FDA-Public Use
  Company Number: JP-AMGEN-QUU443709

PATIENT
  Sex: Female
  Weight: 35 kg

DRUGS (10)
  1. ENBREL [Suspect]
     Indication: RHEUMATOID ARTHRITIS
     Route: 058
     Dates: start: 20090318, end: 20100821
  2. ACTONEL [Concomitant]
     Route: 048
  3. LOXONIN [Concomitant]
     Route: 048
  4. GLUFAST [Concomitant]
     Route: 048
  5. GASTER [Concomitant]
     Route: 048
  6. FOLIAMIN [Concomitant]
     Route: 048
  7. ONE-ALPHA [Concomitant]
     Route: 048
  8. ASPIRIN [Concomitant]
     Route: 048
  9. SELBEX [Concomitant]
     Route: 048
  10. RHEUMATREX [Concomitant]
     Route: 048
     Dates: start: 20050101

REACTIONS (1)
  - PNEUMOCYSTIS JIROVECI PNEUMONIA [None]
